FAERS Safety Report 9399852 (Version 2)
Quarter: 2014Q2

REPORT INFORMATION
  Report Type: Report from Study
  Country: US (occurrence: US)
  Receive Date: 20130715
  Receipt Date: 20140416
  Transmission Date: 20141212
  Serious: Yes (Other)
  Sender: FDA-Public Use
  Company Number: PHEH2013US014645

PATIENT
  Age: 40 Year
  Sex: Female

DRUGS (3)
  1. GILENYA [Suspect]
     Indication: MULTIPLE SCLEROSIS
     Dosage: 0.5 MG, QD
     Route: 048
     Dates: start: 20121219, end: 20130530
  2. TYSABRI [Suspect]
  3. AMPYRA [Concomitant]
     Dosage: 10 MG, UNK

REACTIONS (2)
  - Blood pressure decreased [Not Recovered/Not Resolved]
  - Multiple sclerosis relapse [Unknown]
